FAERS Safety Report 9614641 (Version 1)
Quarter: 2013Q4

REPORT INFORMATION
  Report Type: Spontaneous
  Country: KR (occurrence: KR)
  Receive Date: 20131011
  Receipt Date: 20131011
  Transmission Date: 20140711
  Serious: Yes (Death, Other)
  Sender: FDA-Public Use
  Company Number: KR-MPIJNJ-2013JNJ000469

PATIENT
  Sex: 0

DRUGS (4)
  1. VELCADE [Suspect]
     Indication: PLASMA CELL MYELOMA
     Route: 065
  2. MELPHALAN [Concomitant]
     Indication: PLASMA CELL MYELOMA
  3. CYCLOPHOSPHAMIDE [Concomitant]
     Indication: PLASMA CELL MYELOMA
  4. GRANULOCYTE COLONY-STIMULATING FACTOR NOS [Concomitant]
     Indication: PLASMA CELL MYELOMA

REACTIONS (2)
  - Death [Fatal]
  - Disease progression [Unknown]
